FAERS Safety Report 8962311 (Version 1)
Quarter: 2012Q4

REPORT INFORMATION
  Report Type: Spontaneous
  Country: US (occurrence: None)
  Receive Date: 20121203
  Receipt Date: 20121203
  Transmission Date: 20130627
  Serious: Yes (Hospitalization, Disabling, Other)
  Sender: FDA-Public Use
  Company Number: ACO_33105_2012

PATIENT
  Age: 57 Year
  Sex: Male
  Weight: 122.4 kg

DRUGS (5)
  1. AMPYRA (DALFAMPRIDINE) TABLET, 10MG [Suspect]
     Indication: GAIT DISTURBANCE
     Route: 048
     Dates: start: 201001, end: 2010
  2. AMPYRA (DALFAMPRIDINE) TABLET, 10MG [Suspect]
     Indication: GAIT DISTURBANCE
     Route: 048
     Dates: start: 201002, end: 201207
  3. AVONEX (INTERFERON BETA-1A) [Concomitant]
  4. NEURONTIN (GABAPENTIN) [Concomitant]
  5. ADVIL (IBUPROFEN) [Concomitant]

REACTIONS (6)
  - Ankle fracture [None]
  - Abasia [None]
  - Dysstasia [None]
  - Viral infection [None]
  - Fall [None]
  - Urinary tract infection [None]
